FAERS Safety Report 17159521 (Version 2)
Quarter: 2020Q1

REPORT INFORMATION
  Report Type: Report from Study
  Country: US (occurrence: US)
  Receive Date: 20191216
  Receipt Date: 20200316
  Transmission Date: 20200409
  Serious: Yes (Other)
  Sender: FDA-Public Use
  Company Number: US-OTSUKA-2019_030969

PATIENT
  Age: 59 Year
  Sex: Female

DRUGS (3)
  1. TOLVAPTAN [Suspect]
     Active Substance: TOLVAPTAN
     Indication: INAPPROPRIATE ANTIDIURETIC HORMONE SECRETION
     Dosage: 15 MG, QD
     Route: 048
     Dates: start: 201905
  2. TOLVAPTAN [Suspect]
     Active Substance: TOLVAPTAN
     Indication: HYPONATRAEMIA
     Dosage: 30 MG, QD
     Route: 048
     Dates: start: 20190524
  3. TOLVAPTAN [Suspect]
     Active Substance: TOLVAPTAN
     Indication: BLOOD OSMOLARITY DECREASED
     Dosage: 30 MG, QD
     Route: 048
     Dates: start: 20190125

REACTIONS (10)
  - Blood pressure fluctuation [Recovering/Resolving]
  - Anxiety [Not Recovered/Not Resolved]
  - Thirst [Unknown]
  - Diarrhoea [Unknown]
  - Blood sodium decreased [Not Recovered/Not Resolved]
  - Polyuria [Unknown]
  - Decreased appetite [Unknown]
  - Memory impairment [Unknown]
  - Dry mouth [Not Recovered/Not Resolved]
  - Product dose omission [Unknown]

NARRATIVE: CASE EVENT DATE: 201908
